FAERS Safety Report 9242769 (Version 1)
Quarter: 2013Q2

REPORT INFORMATION
  Report Type: Spontaneous
  Country: US (occurrence: US)
  Receive Date: 20130419
  Receipt Date: 20130419
  Transmission Date: 20140414
  Serious: No
  Sender: FDA-Public Use
  Company Number: US-PFIZER INC-2013122672

PATIENT
  Age: 42 Year
  Sex: Female

DRUGS (16)
  1. LYRICA [Suspect]
     Dosage: 75 MG, 2X/DAY (1 CAPSULE ORALLY TWICE A DAY FOR A WEEK, THEN GO UP TO 150MG TWICE A DAY)
     Route: 048
  2. LYRICA [Suspect]
     Dosage: 150 MG, 2X/DAY
  3. PREDNISONE [Concomitant]
     Dosage: 1 TABLET WITH FOOD OR MILK ORALLY ONCE A DAY IN ADDITION TO 3MG TO MAKE TOTAL OF 8 MG DAILY
     Route: 048
  4. COLECALCIFEROL [Concomitant]
     Dosage: 1000 IU, 1X/DAY
     Route: 048
  5. ERGOCALCIFEROL [Concomitant]
     Dosage: 50000 IU, 1X/DAY
     Route: 048
  6. B COMPLEX [Concomitant]
     Dosage: Q DAY
     Route: 048
  7. FLUTICASONE PROPIONATE [Concomitant]
     Dosage: 50 MCG/ACT SUSPENSION, 2 SPRAY IN EACH NOSTRIL NASALLY ONCE A DAY
     Route: 045
  8. AMBIEN [Concomitant]
     Dosage: 1 TABLET AT BEDTIME AS NEEDED ORALLY ONCE A DAY
     Route: 048
  9. TRAMADOL HYDROCHLORIDE [Concomitant]
     Indication: PAIN
     Dosage: ORALLY EVERY 6 HRS AS NEEDED
     Route: 048
  10. HYDROCODONE W/ACETAMINOPHEN [Concomitant]
     Indication: PAIN
     Dosage: 5/325 MG, EVERY 6 HRS AS NEEDED
  11. FLEXERIL [Concomitant]
     Dosage: 1 TABLET ORALLY TID PRN
     Route: 048
  12. ALBUTEROL [Concomitant]
     Indication: WHEEZING
     Dosage: 90 MCG/ACT AEROSOL SOLUTION, 2 PUFF INHALATION, QID/PRN
  13. LEVORA [Concomitant]
     Dosage: ETHINYLESTRADIOL 0.15MG/ LEVONORGESTREL 30MCG, ONCE A DAY
     Route: 048
  14. GLUCOSAMINE CHONDROITIN COMPLX [Concomitant]
     Dosage: AS DIRECTED ORALLY
     Route: 048
  15. CLARITIN [Concomitant]
     Dosage: 10 MG, 1X/DAY
     Route: 048
  16. MOBIC [Concomitant]
     Dosage: 7.5 MG, 2X/DAY
     Route: 048

REACTIONS (2)
  - Pain [Unknown]
  - Wheezing [Unknown]
